FAERS Safety Report 23733395 (Version 1)
Quarter: 2024Q2

REPORT INFORMATION
  Report Type: Spontaneous
  Country: PL (occurrence: PL)
  Receive Date: 20240411
  Receipt Date: 20240411
  Transmission Date: 20240716
  Serious: Yes (Death)
  Sender: FDA-Public Use
  Company Number: None

PATIENT
  Age: 44 Year
  Sex: Female
  Weight: 80 kg

DRUGS (2)
  1. OXALIPLATIN [Suspect]
     Active Substance: OXALIPLATIN
     Indication: Hepatic cancer
     Route: 042
     Dates: start: 20240311, end: 20240311
  2. OXALIPLATIN [Suspect]
     Active Substance: OXALIPLATIN
     Indication: Gangrene

REACTIONS (9)
  - Gangrene [Fatal]
  - Anxiety [Fatal]
  - Dyspnoea [Fatal]
  - Hypersensitivity [Fatal]
  - Vomiting [Fatal]
  - Erythema [Fatal]
  - Chest discomfort [Fatal]
  - Face oedema [Fatal]
  - Nausea [Fatal]

NARRATIVE: CASE EVENT DATE: 20240311
